FAERS Safety Report 8262384-6 (Version None)
Quarter: 2012Q2

REPORT INFORMATION
  Report Type: 
  Country: None (occurrence: None)
  Receive Date: 20120405
  Receipt Date: 20120326
  Transmission Date: 20120825
  Serious: Yes (Hospitalization)
  Sender: FDA-Public Use
  Company Number: FR-ROCHE-753598

PATIENT
  Sex: Female
  Weight: 67 kg

DRUGS (2)
  1. CHLORAMBUCIL [Suspect]
     Indication: CHRONIC LYMPHOCYTIC LEUKAEMIA
     Dosage: LAST DOSE PRIOR TO SAE WAS ON 05 JANUARY 2011
     Route: 048
  2. MABTHERA [Suspect]
     Indication: CHRONIC LYMPHOCYTIC LEUKAEMIA
     Dosage: DOSE: 860MG. LAST DOSE PRIOR TO SAE WAS ON 05 JANUARY 2011.
     Route: 042

REACTIONS (1)
  - NEPHROLITHIASIS [None]
